FAERS Safety Report 6861166-7 (Version None)
Quarter: 2010Q3

REPORT INFORMATION
  Report Type: 
  Country: None (occurrence: None)
  Receive Date: 20100720
  Receipt Date: 20100708
  Transmission Date: 20110219
  Serious: Yes (Other)
  Sender: FDA-Public Use
  Company Number: US-PFIZER INC-2010086172

PATIENT
  Sex: Male
  Weight: 89.796 kg

DRUGS (10)
  1. GEODON [Suspect]
     Indication: BIPOLAR DISORDER
     Dosage: 80 MG, DAILY
     Route: 048
     Dates: start: 20090101
  2. GEODON [Suspect]
     Indication: DEPRESSION
     Dosage: 60 MG, 1X/DAY
  3. GEODON [Suspect]
     Indication: POST-TRAUMATIC STRESS DISORDER
     Dosage: 20 MG, 1X/DAY
  4. LIPITOR [Concomitant]
     Dosage: UNK
  5. LEVOTHYROXINE [Concomitant]
     Dosage: 125 MCG, DAILY
  6. FENOFIBRATE [Concomitant]
     Dosage: UNK
  7. GABAPENTIN [Concomitant]
     Dosage: 300 MG, 2X/DAY
  8. WELLBUTRIN [Concomitant]
     Dosage: 100 MG, UNK
  9. DIAZEPAM [Concomitant]
     Dosage: 10 MG, AS NEEDED
  10. FISH OIL [Concomitant]
     Dosage: UNK

REACTIONS (5)
  - BLOOD PRESSURE FLUCTUATION [None]
  - FALL [None]
  - HEART RATE DECREASED [None]
  - HYPERTENSION [None]
  - LOSS OF CONSCIOUSNESS [None]
